FAERS Safety Report 17821499 (Version 2)
Quarter: 2020Q2

REPORT INFORMATION
  Report Type: Spontaneous
  Country: BR (occurrence: BR)
  Receive Date: 20200525
  Receipt Date: 20200528
  Transmission Date: 20200714
  Serious: Yes (Hospitalization, Other)
  Sender: FDA-Public Use
  Company Number: BR-PFIZER INC-2020204275

PATIENT
  Age: 65 Year
  Sex: Male
  Weight: 78 kg

DRUGS (3)
  1. LUMIGAN [Concomitant]
     Active Substance: BIMATOPROST
     Dosage: UNK
  2. VYNDAQEL [Suspect]
     Active Substance: TAFAMIDIS MEGLUMINE
     Indication: POLYNEUROPATHY
     Dosage: 1 DF, DAILY (1 TABLET PER DAY)
     Dates: start: 2019, end: 202005
  3. AAS [Concomitant]
     Active Substance: ASPIRIN
     Dosage: UNK

REACTIONS (10)
  - Hypotension [Not Recovered/Not Resolved]
  - Hypertension [Not Recovered/Not Resolved]
  - Product use in unapproved indication [Unknown]
  - Taste disorder [Not Recovered/Not Resolved]
  - Urinary tract infection [Recovered/Resolved]
  - Diarrhoea [Not Recovered/Not Resolved]
  - Off label use [Unknown]
  - Abdominal distension [Not Recovered/Not Resolved]
  - Pneumonia [Recovered/Resolved]
  - Cough [Not Recovered/Not Resolved]

NARRATIVE: CASE EVENT DATE: 2019
